FAERS Safety Report 10080652 (Version 1)
Quarter: 2014Q2

REPORT INFORMATION
  Report Type: Spontaneous
  Country: GB (occurrence: None)
  Receive Date: 20140414
  Receipt Date: 20140414
  Transmission Date: 20141212
  Serious: Yes (Other)
  Sender: FDA-Public Use
  Company Number: GB-DEXPHARM-20140166

PATIENT
  Sex: Female

DRUGS (6)
  1. OMEPRAZOLE [Suspect]
     Indication: PRODUCT USED FOR UNKNOWN INDICATION
     Dosage: 20 MG SEP. DOSAGES/INTERVAL: 1 IN 1 DAYS
     Dates: start: 20130731
  2. BENDROFLUMETHIAZIDE [Concomitant]
  3. CLENIL MODULITE [Concomitant]
  4. GAVISCON [Concomitant]
  5. PARACETAMOL [Concomitant]
  6. VENTOLIN [Concomitant]

REACTIONS (2)
  - Asthma [None]
  - Drug ineffective [None]
